FAERS Safety Report 16584795 (Version 8)
Quarter: 2019Q4

REPORT INFORMATION
  Report Type: Report from Study
  Country: DE (occurrence: DE)
  Receive Date: 20190717
  Receipt Date: 20191018
  Transmission Date: 20200122
  Serious: Yes (Other)
  Sender: FDA-Public Use
  Company Number: PHHY2019DE128600

PATIENT
  Sex: Female
  Weight: 67.3 kg

DRUGS (3)
  1. KISQALI [Suspect]
     Active Substance: RIBOCICLIB
     Indication: BREAST CANCER METASTATIC
     Dosage: 600 MG, QD (SCHEME 21 DAYS INTAKE, 7 DAYS PAUSE)
     Route: 048
     Dates: start: 20190207, end: 20190605
  2. KISQALI [Suspect]
     Active Substance: RIBOCICLIB
     Dosage: 400 MG, SCHEME 21 DAYS INTAKE, 7 DAYS PAUSE
     Route: 048
     Dates: start: 20190614
  3. FULVESTRANT. [Suspect]
     Active Substance: FULVESTRANT
     Indication: BREAST CANCER METASTATIC
     Dosage: 500 MG (DAILY DOSE), EVERY 4 WEEKS
     Route: 030
     Dates: start: 20190207

REACTIONS (5)
  - Neutropenia [Recovered/Resolved]
  - Electrocardiogram T wave abnormal [Recovered/Resolved]
  - Mitral valve incompetence [Recovered/Resolved]
  - Weight decreased [Unknown]
  - Eastern Cooperative Oncology Group performance status worsened [Recovered/Resolved]

NARRATIVE: CASE EVENT DATE: 20190319
